FAERS Safety Report 10468272 (Version 1)
Quarter: 2014Q3

REPORT INFORMATION
  Report Type: Report from Study
  Country: DE (occurrence: DE)
  Receive Date: 20140922
  Receipt Date: 20140922
  Transmission Date: 20150326
  Serious: Yes (Other)
  Sender: FDA-Public Use
  Company Number: DE-SA-2014SA125867

PATIENT
  Age: 59 Year
  Sex: Male

DRUGS (11)
  1. FLUCONAZOLE. [Concomitant]
     Active Substance: FLUCONAZOLE
     Indication: ANTIFUNGAL PROPHYLAXIS
  2. CLOFARABINE [Suspect]
     Active Substance: CLOFARABINE
     Indication: MYELODYSPLASTIC SYNDROME
     Route: 041
  3. CYCLOPHOSPHAMIDE. [Suspect]
     Active Substance: CYCLOPHOSPHAMIDE
     Indication: BONE MARROW CONDITIONING REGIMEN
     Dosage: DOSE: 60MG/KG FOR UNRELATED DONOR AND 40 MG/KG FOR RELATED DONOR
     Route: 065
  4. THERAPEUTIC RADIOPHARMACEUTICALS [Suspect]
     Active Substance: RADIATION THERAPY
     Indication: BONE MARROW CONDITIONING REGIMEN
     Dosage: DOSE :4 GRAY
     Route: 065
  5. LEVOFLOXACIN [Concomitant]
     Active Substance: LEVOFLOXACIN
     Indication: ANTIBIOTIC PROPHYLAXIS
  6. MYCOPHENOLATE MOFETIL. [Concomitant]
     Active Substance: MYCOPHENOLATE MOFETIL
     Indication: PROPHYLAXIS AGAINST GRAFT VERSUS HOST DISEASE
  7. ARA-C [Suspect]
     Active Substance: CYTARABINE
     Indication: MYELODYSPLASTIC SYNDROME
     Route: 041
  8. ANTI-THYMOCYTE GLOBULIN (RABBIT) [Suspect]
     Active Substance: LAPINE T-LYMPHOCYTE IMMUNE GLOBULIN
     Indication: BONE MARROW CONDITIONING REGIMEN
     Route: 065
  9. ACYCLOVIR. [Concomitant]
     Active Substance: ACYCLOVIR
     Indication: ANTIVIRAL PROPHYLAXIS
  10. CYCLOSPORINE. [Concomitant]
     Active Substance: CYCLOSPORINE
     Indication: PROPHYLAXIS AGAINST GRAFT VERSUS HOST DISEASE
  11. METRONIDAZOLE. [Concomitant]
     Active Substance: METRONIDAZOLE
     Indication: ANTIBIOTIC PROPHYLAXIS

REACTIONS (6)
  - Oedema [Unknown]
  - Pyrexia [Unknown]
  - Aspartate aminotransferase increased [Recovered/Resolved]
  - Haematotoxicity [Unknown]
  - Alanine aminotransferase increased [Recovered/Resolved]
  - Palmar-plantar erythrodysaesthesia syndrome [Recovered/Resolved]
